FAERS Safety Report 15440889 (Version 1)
Quarter: 2018Q3

REPORT INFORMATION
  Report Type: Spontaneous
  Country: DE (occurrence: DE)
  Receive Date: 20180928
  Receipt Date: 20180928
  Transmission Date: 20181010
  Serious: Yes (Hospitalization)
  Sender: FDA-Public Use
  Company Number: DE-009507513-1809DEU009733

PATIENT
  Sex: Female

DRUGS (1)
  1. CELESTAMINE N [Suspect]
     Active Substance: BETAMETHASONE
     Indication: FOOD ALLERGY

REACTIONS (2)
  - Cardiovascular disorder [Unknown]
  - Urticaria [Unknown]
